FAERS Safety Report 6967916-3 (Version None)
Quarter: 2010Q3

REPORT INFORMATION
  Report Type: 
  Country: None (occurrence: None)
  Receive Date: 20100907
  Receipt Date: 20100827
  Transmission Date: 20110219
  Serious: No
  Sender: FDA-Public Use
  Company Number: JP-US-EMD SERONO, INC.-7015701

PATIENT
  Age: 30 Year
  Sex: Female

DRUGS (1)
  1. SEROPHENE [Suspect]
     Indication: PRODUCT USED FOR UNKNOWN INDICATION
     Dates: start: 20090501, end: 20090601

REACTIONS (1)
  - OVARIAN HYPERSTIMULATION SYNDROME [None]
